FAERS Safety Report 5667921-3 (Version None)
Quarter: 2008Q1

REPORT INFORMATION
  Report Type: 
  Country: None (occurrence: None)
  Receive Date: 20080315
  Receipt Date: 20080207
  Transmission Date: 20080703
  Serious: No
  Sender: FDA-Public Use
  Company Number: US-ABBOTT-08P-163-0437632-00

PATIENT

DRUGS (5)
  1. HUMIRA [Suspect]
     Indication: CROHN'S DISEASE
     Route: 058
     Dates: start: 20070709
  2. ESOMEPRAZOLE MAGNESIUM [Concomitant]
     Indication: GASTRIC ULCER
     Route: 048
  3. MULTI-VITAMIN [Concomitant]
     Indication: CROHN'S DISEASE
     Route: 048
  4. CALCIUM-SANDOZ [Concomitant]
     Indication: CROHN'S DISEASE
     Dosage: 1-2 TABS
     Route: 048
  5. IRON [Concomitant]
     Indication: CROHN'S DISEASE
     Route: 048

REACTIONS (2)
  - DIARRHOEA [None]
  - WEIGHT GAIN POOR [None]
